FAERS Safety Report 4553060-1 (Version None)
Quarter: 2005Q1

REPORT INFORMATION
  Report Type: 
  Country: None (occurrence: None)
  Receive Date: 20050114
  Receipt Date: 20050113
  Transmission Date: 20050727
  Serious: Yes (Life-Threatening)
  Sender: FDA-Public Use
  Company Number: PHBS2005NL00847

PATIENT
  Age: 90 Year
  Sex: Female

DRUGS (10)
  1. FENOTEROL HYDROBROMIDE W/IPRATROPIUM BROMIDE [Concomitant]
  2. FLUTICASONE PROPIONATE [Concomitant]
  3. HYPROMELLOSE [Concomitant]
  4. ACETYLSALICYLIC ACID SRT [Concomitant]
  5. COLECALCIFEROL [Concomitant]
  6. LEVODOPA BENSERAZIDE HYDROCHLO [Concomitant]
  7. MAGNESIUM OXIDE [Concomitant]
  8. PANTOPRAZOLE [Concomitant]
  9. TEMAZEPAM [Concomitant]
  10. LEPONEX [Suspect]
     Dosage: 12.5 MG/DAY
     Route: 048

REACTIONS (5)
  - CHEYNE-STOKES RESPIRATION [None]
  - COMA [None]
  - HYPOTENSION [None]
  - LOSS OF CONSCIOUSNESS [None]
  - SOMNOLENCE [None]
